FAERS Safety Report 7090276-7 (Version None)
Quarter: 2010Q4

REPORT INFORMATION
  Report Type: 
  Country: None (occurrence: None)
  Receive Date: 20101105
  Receipt Date: 20101105
  Transmission Date: 20110411
  Serious: No
  Sender: FDA-Public Use
  Company Number: None

PATIENT
  Age: 28 Year
  Sex: Female
  Weight: 57.6068 kg

DRUGS (4)
  1. REGLAN [Suspect]
     Indication: DIARRHOEA
     Dosage: ONE TIME IV
     Route: 042
     Dates: start: 20101022, end: 20101022
  2. REGLAN [Suspect]
     Indication: GASTROENTERITIS VIRAL
     Dosage: ONE TIME IV
     Route: 042
     Dates: start: 20101022, end: 20101022
  3. REGLAN [Suspect]
     Indication: HEADACHE
     Dosage: ONE TIME IV
     Route: 042
     Dates: start: 20101022, end: 20101022
  4. REGLAN [Suspect]
     Indication: VOMITING
     Dosage: ONE TIME IV
     Route: 042
     Dates: start: 20101022, end: 20101022

REACTIONS (2)
  - DYSKINESIA [None]
  - INSOMNIA [None]
